FAERS Safety Report 18252671 (Version 1)
Quarter: 2020Q3

REPORT INFORMATION
  Report Type: Spontaneous
  Country: AT (occurrence: AT)
  Receive Date: 20200910
  Receipt Date: 20200910
  Transmission Date: 20201103
  Serious: Yes (Other)
  Sender: FDA-Public Use
  Company Number: AT-ROCHE-2674922

PATIENT
  Sex: Male

DRUGS (1)
  1. CAPECITABINE. [Suspect]
     Active Substance: CAPECITABINE
     Indication: PROSTATE CANCER
     Dosage: STRENGTH 150 MG AND 500 MG
     Route: 048

REACTIONS (3)
  - Product use in unapproved indication [Unknown]
  - Short-bowel syndrome [Unknown]
  - Off label use [Unknown]
